FAERS Safety Report 9433229 (Version 1)
Quarter: 2013Q3

REPORT INFORMATION
  Report Type: Spontaneous
  Country: DE (occurrence: DE)
  Receive Date: 20130731
  Receipt Date: 20130731
  Transmission Date: 20140515
  Serious: Yes (Other)
  Sender: FDA-Public Use
  Company Number: DE-INCYTE CORPORATION-2013IN001651

PATIENT
  Age: 70 Year
  Sex: Male

DRUGS (1)
  1. JAKAVI [Suspect]
     Dosage: 5 MG, BID
     Route: 048

REACTIONS (1)
  - Blood potassium increased [Unknown]
